FAERS Safety Report 4426310-X (Version None)
Quarter: 2004Q3

REPORT INFORMATION
  Report Type: 
  Country: None (occurrence: None)
  Receive Date: 20040811
  Receipt Date: 20040806
  Transmission Date: 20050211
  Serious: Yes (Hospitalization)
  Sender: FDA-Public Use
  Company Number: 04-08-1140

PATIENT
  Age: 72 Year
  Sex: Female

DRUGS (12)
  1. PROCHLORPERAZINE MALEATE [Suspect]
     Indication: NAUSEA
     Dosage: UNKNOWN
     Route: 065
     Dates: end: 20040620
  2. ARTHROTEC UNKNOWN [Suspect]
     Indication: ARTHRITIS
     Dosage: UNKNOWN; ORAL
     Route: 048
     Dates: end: 20040620
  3. ALENDRONATE SODIUM [Concomitant]
  4. ADCAL D3 [Concomitant]
  5. MST CONTINUS [Concomitant]
  6. LANSOPRAZOLE 30MG OD [Concomitant]
  7. ASPIRIN [Concomitant]
  8. CO-PROXAMOL [Concomitant]
  9. DIPYRIDAMOLE [Concomitant]
  10. LACTULOSE [Concomitant]
  11. RANITIDINE [Concomitant]
  12. SEVREDOL [Concomitant]

REACTIONS (4)
  - BLOOD POTASSIUM DECREASED [None]
  - INAPPROPRIATE ANTIDIURETIC HORMONE SECRETION [None]
  - SOMNOLENCE [None]
  - URINARY RETENTION [None]
